FAERS Safety Report 20922161 (Version 1)
Quarter: 2022Q2

REPORT INFORMATION
  Report Type: Spontaneous
  Country: US (occurrence: US)
  Receive Date: 20220607
  Receipt Date: 20220607
  Transmission Date: 20220721
  Serious: Yes (Hospitalization)
  Sender: FDA-Public Use
  Company Number: US-STRIDES ARCOLAB LIMITED-2022SP006001

PATIENT
  Age: 10 Year
  Sex: Female
  Weight: 49.4 kg

DRUGS (2)
  1. PREDNISOLONE [Suspect]
     Active Substance: PREDNISOLONE
     Indication: Nephrotic syndrome
     Dosage: 60 MILLIGRAM PER DAY
     Route: 065
  2. PREDNISOLONE [Suspect]
     Active Substance: PREDNISOLONE
     Indication: Tubulointerstitial nephritis
     Dosage: UNK, (WITH GRADUAL TAPERING OVER SIX WEEKS)
     Route: 065

REACTIONS (1)
  - Hypertension [Recovered/Resolved]
